FAERS Safety Report 4286947-8 (Version None)
Quarter: 2004Q1

REPORT INFORMATION
  Report Type: 
  Country: None (occurrence: None)
  Receive Date: 20040206
  Receipt Date: 20030327
  Transmission Date: 20041129
  Serious: No
  Sender: FDA-Public Use
  Company Number: WAES 0303USA02677B1

PATIENT
  Sex: Male
  Weight: 2 kg

DRUGS (6)
  1. COMBIVENT [Concomitant]
     Dates: start: 20030101
  2. ZYRTEC [Concomitant]
     Dates: start: 20030304
  3. BENTYL [Concomitant]
     Dates: start: 19940801
  4. ADVAIR DISKUS 100/50 [Concomitant]
     Dates: start: 19980101
  5. SINGULAIR [Suspect]
     Dates: start: 19990101
  6. ZOFRAN [Concomitant]

REACTIONS (6)
  - ECLAMPSIA [None]
  - MATERNAL DRUGS AFFECTING FOETUS [None]
  - PRE-ECLAMPSIA [None]
  - RENAL FAILURE [None]
  - SMALL FOR DATES BABY [None]
  - WEIGHT GAIN POOR [None]
